FAERS Safety Report 9729767 (Version 1)
Quarter: 2013Q4

REPORT INFORMATION
  Report Type: Spontaneous
  Country: US (occurrence: US)
  Receive Date: 20131204
  Receipt Date: 20131204
  Transmission Date: 20140711
  Serious: No
  Sender: FDA-Public Use
  Company Number: US-GILEAD-2009-0022326

PATIENT
  Sex: Female
  Weight: 50.8 kg

DRUGS (13)
  1. LETAIRIS [Suspect]
     Indication: PULMONARY ARTERIAL HYPERTENSION
     Route: 048
     Dates: start: 20090313
  2. VENTAVIS [Concomitant]
  3. COUMADIN [Concomitant]
  4. FUROSEMIDE [Concomitant]
  5. PREDNISONE [Concomitant]
  6. IMURAN [Concomitant]
  7. ZYRTEC [Concomitant]
  8. ESTRACE [Concomitant]
  9. ACTONEL [Concomitant]
  10. CALCIUM [Concomitant]
  11. POTASSIUM CHLORIDE [Concomitant]
  12. VITAMIN D [Concomitant]
  13. PREVACID [Concomitant]

REACTIONS (1)
  - Unevaluable event [Unknown]
